FAERS Safety Report 6761803-1 (Version None)
Quarter: 2010Q2

REPORT INFORMATION
  Report Type: 
  Country: None (occurrence: None)
  Receive Date: 20100607
  Receipt Date: 20100601
  Transmission Date: 20101027
  Serious: Yes (Hospitalization, Other)
  Sender: FDA-Public Use
  Company Number: 2010SP030491

PATIENT
  Age: 59 Year
  Sex: Female

DRUGS (3)
  1. MIRALAX [Suspect]
     Indication: DRUG USE FOR UNKNOWN INDICATION
     Dosage: ONCE;PO
     Route: 048
     Dates: start: 20100531
  2. PLAVIX [Concomitant]
  3. MILK OF MAGNESIA TAB [Concomitant]
     Dosage: PO
     Route: 048

REACTIONS (2)
  - DEHYDRATION [None]
  - VOMITING PROJECTILE [None]
